FAERS Safety Report 24705796 (Version 1)
Quarter: 2024Q4

REPORT INFORMATION
  Report Type: Spontaneous
  Country: US (occurrence: None)
  Receive Date: 20241205
  Receipt Date: 20241205
  Transmission Date: 20250114
  Serious: Yes (Disabling, Other)
  Sender: Public
  Company Number: None

PATIENT
  Age: 65 Year
  Sex: Male
  Weight: 83.25 kg

DRUGS (5)
  1. PRAMIPEXOLE [Suspect]
     Active Substance: PRAMIPEXOLE\PRAMIPEXOLE DIHYDROCHLORIDE
     Indication: Restless legs syndrome
  2. ROPINIROLE [Suspect]
     Active Substance: ROPINIROLE
  3. PRAMIPEXOLE [Concomitant]
     Active Substance: PRAMIPEXOLE\PRAMIPEXOLE DIHYDROCHLORIDE
     Dates: start: 20000101, end: 20231123
  4. ROPINIROLE [Concomitant]
     Active Substance: ROPINIROLE
     Dates: start: 20230601, end: 20231214
  5. Rotigotine Patch [Concomitant]
     Dates: start: 20231214, end: 20240110

REACTIONS (6)
  - Restless leg augmentation syndrome [None]
  - Personality change [None]
  - Anhedonia [None]
  - Depression [None]
  - Antisocial behaviour [None]
  - Periodic limb movement disorder [None]
